FAERS Safety Report 7424366-3 (Version None)
Quarter: 2011Q2

REPORT INFORMATION
  Report Type: 
  Country: None (occurrence: None)
  Receive Date: 20110419
  Receipt Date: 20110412
  Transmission Date: 20111010
  Serious: Yes (Other)
  Sender: FDA-Public Use
  Company Number: FR-KINGPHARMUSA00001-K201100438

PATIENT
  Age: 63 Year
  Sex: Male

DRUGS (2)
  1. ALTACE [Suspect]
     Indication: HYPERTENSION
     Dosage: 5 MG, DAILY
     Route: 048
     Dates: start: 20100701, end: 20101201
  2. SIMVASTATIN [Concomitant]
     Route: 065

REACTIONS (2)
  - RAYNAUD'S PHENOMENON [None]
  - FROSTBITE [None]
